FAERS Safety Report 10163324 (Version 1)
Quarter: 2014Q2

REPORT INFORMATION
  Report Type: Report from Study
  Country: CZ (occurrence: CZ)
  Receive Date: 20140509
  Receipt Date: 20140509
  Transmission Date: 20141212
  Serious: Yes (Other)
  Sender: FDA-Public Use
  Company Number: CZ-ABBVIE-14K-217-1235201-00

PATIENT
  Age: 52 Year
  Sex: Male

DRUGS (10)
  1. HUMIRA [Suspect]
     Indication: PSORIASIS
     Route: 058
  2. IRBESARTAN [Suspect]
     Indication: HYPERTENSION
     Dates: start: 20140325, end: 20140425
  3. CORYOL [Concomitant]
     Indication: PRODUCT USED FOR UNKNOWN INDICATION
  4. ORCAL [Concomitant]
     Indication: PRODUCT USED FOR UNKNOWN INDICATION
  5. FURON [Concomitant]
     Indication: PRODUCT USED FOR UNKNOWN INDICATION
  6. VEROSPIRON [Concomitant]
     Indication: PRODUCT USED FOR UNKNOWN INDICATION
  7. PANTOPRAZOLUM ( NOLPLAZA ) [Concomitant]
     Indication: PRODUCT USED FOR UNKNOWN INDICATION
  8. LAGOSA [Concomitant]
     Indication: PRODUCT USED FOR UNKNOWN INDICATION
  9. HUMULIN R [Concomitant]
     Indication: PRODUCT USED FOR UNKNOWN INDICATION
  10. HUMULIN N [Concomitant]
     Indication: PRODUCT USED FOR UNKNOWN INDICATION

REACTIONS (5)
  - Renal failure acute [Unknown]
  - Blood urea increased [Unknown]
  - Blood creatinine increased [Unknown]
  - Renal impairment [Unknown]
  - Dehydration [Unknown]
